FAERS Safety Report 8168508-3 (Version None)
Quarter: 2012Q1

REPORT INFORMATION
  Report Type: 
  Country: None (occurrence: None)
  Receive Date: 20120227
  Receipt Date: 20120227
  Transmission Date: 20120608
  Serious: Yes (Hospitalization)
  Sender: FDA-Public Use
  Company Number: None

PATIENT
  Age: 68 Year
  Sex: Male
  Weight: 80.8 kg

DRUGS (9)
  1. ASPIRIN [Concomitant]
     Dosage: 81 MG
     Route: 048
  2. ASPIRIN [Concomitant]
     Route: 048
  3. ZESTRIL [Concomitant]
  4. IMDUR [Concomitant]
  5. RANEXA [Concomitant]
  6. FLOMAX [Concomitant]
  7. PROTONIX [Concomitant]
  8. EFFIENT [Suspect]
     Dosage: 10 MG
     Route: 048
  9. LEXAPRO [Concomitant]

REACTIONS (8)
  - GASTRITIS [None]
  - VOMITING [None]
  - CHEST PAIN [None]
  - DYSPNOEA [None]
  - ANAEMIA [None]
  - CARDIAC FAILURE [None]
  - DUODENITIS [None]
  - NAUSEA [None]
